FAERS Safety Report 13069057 (Version 1)
Quarter: 2016Q4

REPORT INFORMATION
  Report Type: Report from Study
  Country: None (occurrence: US)
  Receive Date: 20161228
  Receipt Date: 20161228
  Transmission Date: 20170207
  Serious: Yes (Other)
  Sender: FDA-Public Use
  Company Number: US-ABBVIE-16P-163-1820696-00

PATIENT
  Sex: Female

DRUGS (2)
  1. LUPRON DEPOT [Suspect]
     Active Substance: LEUPROLIDE ACETATE
     Indication: UTERINE LEIOMYOMA
     Route: 050
     Dates: start: 2001
  2. TIROSINT [Concomitant]
     Active Substance: LEVOTHYROXINE SODIUM
     Indication: HYPOTHYROIDISM
     Route: 048

REACTIONS (13)
  - Uterine leiomyoma [Not Recovered/Not Resolved]
  - Menorrhagia [Not Recovered/Not Resolved]
  - Infertility [Recovered/Resolved]
  - In vitro fertilisation [Unknown]
  - Exposure during pregnancy [Unknown]
  - Uterine disorder [Unknown]
  - Abdominal hernia [Unknown]
  - Anaemia [Not Recovered/Not Resolved]
  - Peripheral swelling [Not Recovered/Not Resolved]
  - Abdominal hernia [Unknown]
  - Uterine leiomyoma embolisation [Unknown]
  - Uterine leiomyoma [Not Recovered/Not Resolved]
  - Fibrosis [Unknown]

NARRATIVE: CASE EVENT DATE: 2003
